FAERS Safety Report 6743109-X (Version None)
Quarter: 2010Q2

REPORT INFORMATION
  Report Type: 
  Country: None (occurrence: None)
  Receive Date: 20100525
  Receipt Date: 20100510
  Transmission Date: 20101027
  Serious: Yes (Other)
  Sender: FDA-Public Use
  Company Number: 2010001871

PATIENT
  Age: 79 Year
  Sex: Male

DRUGS (1)
  1. TARCEVA [Suspect]
     Indication: LUNG ADENOCARCINOMA
     Dosage: (100 MG), ORAL
     Route: 048
     Dates: start: 20081201

REACTIONS (1)
  - LICHEN PLANUS [None]
